FAERS Safety Report 15409112 (Version 4)
Quarter: 2019Q4

REPORT INFORMATION
  Report Type: Spontaneous
  Country: US (occurrence: US)
  Receive Date: 20180920
  Receipt Date: 20191009
  Transmission Date: 20200122
  Serious: No
  Sender: FDA-Public Use
  Company Number: US-PFIZER INC-2018375287

PATIENT
  Age: 70 Year
  Sex: Female

DRUGS (2)
  1. LYRICA [Suspect]
     Active Substance: PREGABALIN
     Dosage: 200 MG, UNK
  2. LYRICA [Suspect]
     Active Substance: PREGABALIN
     Dosage: UNK

REACTIONS (7)
  - Feeling abnormal [Unknown]
  - Withdrawal syndrome [Unknown]
  - Chills [Unknown]
  - Hyperhidrosis [Unknown]
  - Intentional product misuse [Unknown]
  - Middle insomnia [Unknown]
  - Pyrexia [Unknown]
